FAERS Safety Report 23884887 (Version 1)
Quarter: 2024Q2

REPORT INFORMATION
  Report Type: Spontaneous
  Country: CA (occurrence: CA)
  Receive Date: 20240522
  Receipt Date: 20240522
  Transmission Date: 20240716
  Serious: Yes (Disabling)
  Sender: FDA-Public Use
  Company Number: CA-TAKEDA-2024TUS048878

PATIENT
  Age: 53 Year
  Sex: Female
  Weight: 92 kg

DRUGS (2)
  1. VYVANSE [Suspect]
     Active Substance: LISDEXAMFETAMINE DIMESYLATE
     Indication: Attention deficit hyperactivity disorder
     Dosage: 40 MILLIGRAM, QOD
     Route: 048
  2. VYVANSE [Suspect]
     Active Substance: LISDEXAMFETAMINE DIMESYLATE
     Dosage: 50 MILLIGRAM, QOD
     Route: 048

REACTIONS (5)
  - Agitation [Recovered/Resolved]
  - Confusional state [Recovered/Resolved]
  - Dysarthria [Recovered/Resolved]
  - Obsessive rumination [Recovered/Resolved]
  - Tachyphrenia [Recovered/Resolved]
